FAERS Safety Report 7635150-X (Version None)
Quarter: 2011Q3

REPORT INFORMATION
  Report Type: 
  Country: None (occurrence: None)
  Receive Date: 20110726
  Receipt Date: 20110714
  Transmission Date: 20111222
  Serious: Yes (Hospitalization, Other)
  Sender: FDA-Public Use
  Company Number: US-BAYER-2011-018963

PATIENT
  Age: 39 Year
  Sex: Female
  Weight: 65.76 kg

DRUGS (13)
  1. YAZ [Suspect]
     Indication: PRODUCT USED FOR UNKNOWN INDICATION
     Dosage: UNK
     Route: 048
     Dates: start: 20090601, end: 20091001
  2. FLUCONAZOLE [Concomitant]
  3. ASPIRIN [Concomitant]
  4. PROAIR HFA [Concomitant]
  5. BUSPAR [Concomitant]
  6. GLUCOPHAGE [Concomitant]
  7. VIT D- VIT E - SAFFLOWER [Concomitant]
  8. GLIPIZIDE [Concomitant]
  9. LORATADINE [Concomitant]
  10. ZOLOFT [Concomitant]
  11. INSULIN [Concomitant]
  12. QVAR 40 [Concomitant]
  13. VIT D [Concomitant]

REACTIONS (2)
  - PULMONARY EMBOLISM [None]
  - DEEP VEIN THROMBOSIS [None]
